FAERS Safety Report 6095591-1 (Version None)
Quarter: 2009Q1

REPORT INFORMATION
  Report Type: 
  Country: None (occurrence: None)
  Receive Date: 20090227
  Receipt Date: 20080501
  Transmission Date: 20090719
  Serious: No
  Sender: FDA-Public Use
  Company Number: A0725871A

PATIENT
  Age: 72 Year
  Sex: Male

DRUGS (1)
  1. LAMICTAL [Suspect]
     Indication: BIPOLAR DISORDER
     Dosage: 50MG UNKNOWN
     Route: 048

REACTIONS (2)
  - OEDEMA PERIPHERAL [None]
  - RASH [None]
